FAERS Safety Report 5803185-5 (Version None)
Quarter: 2008Q2

REPORT INFORMATION
  Report Type: 
  Country: None (occurrence: None)
  Receive Date: 20080627
  Receipt Date: 20080428
  Transmission Date: 20081010
  Serious: Yes (Other)
  Sender: FDA-Public Use
  Company Number: PHEH2008US03632

PATIENT
  Age: 71 Year
  Sex: Female

DRUGS (3)
  1. RECLAST [Suspect]
     Indication: OSTEOPOROSIS
     Dosage: 5 MG, ONCE YEARLY, INFUSION
     Dates: start: 20071219
  2. MOBIC [Concomitant]
  3. ESTROGENS SOL/INJ [Concomitant]

REACTIONS (9)
  - DENTAL CLEANING [None]
  - DENTAL FISTULA [None]
  - ERYTHEMA [None]
  - GINGIVAL INFECTION [None]
  - ORAL DISORDER [None]
  - ORAL PAIN [None]
  - OSTEONECROSIS [None]
  - SWELLING [None]
  - TOOTH ABSCESS [None]
